FAERS Safety Report 9952815 (Version 1)
Quarter: 2014Q1

REPORT INFORMATION
  Report Type: Spontaneous
  Country: US (occurrence: US)
  Receive Date: 20140304
  Receipt Date: 20140304
  Transmission Date: 20141002
  Serious: No
  Sender: FDA-Public Use
  Company Number: US-PFIZER INC-2014061586

PATIENT
  Age: 63 Year
  Sex: Female

DRUGS (8)
  1. PRISTIQ [Suspect]
     Dosage: UNK
  2. LIPITOR [Suspect]
     Dosage: UNK
  3. OMNICEF [Suspect]
     Dosage: UNK
  4. NAVANE [Suspect]
     Dosage: UNK
  5. TRICOR [Suspect]
     Dosage: UNK
  6. ABILIFY [Suspect]
     Dosage: UNK
  7. ELAVIL [Suspect]
     Dosage: UNK
  8. WELLBUTRIN [Suspect]
     Dosage: UNK

REACTIONS (1)
  - Drug hypersensitivity [Unknown]
